FAERS Safety Report 7572876-0 (Version None)
Quarter: 2011Q2

REPORT INFORMATION
  Report Type: 
  Country: None (occurrence: None)
  Receive Date: 20110627
  Receipt Date: 20110615
  Transmission Date: 20111010
  Serious: Yes (Hospitalization, Other)
  Sender: FDA-Public Use
  Company Number: US-ELI_LILLY_AND_COMPANY-US201106005016

PATIENT
  Age: 52 Year
  Sex: Female

DRUGS (6)
  1. ZYPREXA [Suspect]
     Dosage: 10 MG, QD
     Route: 048
  2. ZYPREXA [Suspect]
     Indication: SCHIZOAFFECTIVE DISORDER BIPOLAR TYPE
     Dosage: 15 MG, QD
     Route: 048
  3. ZYPREXA RELPREVV [Suspect]
     Indication: SCHIZOAFFECTIVE DISORDER BIPOLAR TYPE
     Dosage: UNK, UNKNOWN
     Route: 030
     Dates: start: 20110531
  4. ZYPREXA [Suspect]
     Dosage: 5 MG, QD
     Route: 048
  5. RITALIN [Concomitant]
     Dosage: UNK, UNKNOWN
     Route: 065
  6. ATIVAN [Concomitant]
     Dosage: UNK, UNKNOWN
     Route: 065

REACTIONS (3)
  - FATIGUE [None]
  - MANIA [None]
  - THYROID CANCER [None]
